FAERS Safety Report 25900632 (Version 3)
Quarter: 2025Q4

REPORT INFORMATION
  Report Type: Report from Study
  Country: US (occurrence: US)
  Receive Date: 20251009
  Receipt Date: 20251031
  Transmission Date: 20260118
  Serious: Yes (Other)
  Sender: MERCK SHARP & DOHME LLC
  Company Number: US-009507513-2336325

PATIENT
  Sex: Female
  Weight: 58.06 kg

DRUGS (30)
  1. WINREVAIR [Suspect]
     Active Substance: SOTATERCEPT-CSRK
     Indication: Pulmonary arterial hypertension
     Dosage: 0.8ML/Q3W
     Route: 050
     Dates: start: 2025
  2. WINREVAIR [Suspect]
     Active Substance: SOTATERCEPT-CSRK
  3. WINREVAIR [Suspect]
     Active Substance: SOTATERCEPT-CSRK
  4. WINREVAIR [Suspect]
     Active Substance: SOTATERCEPT-CSRK
  5. REMODULIN [Suspect]
     Active Substance: TREPROSTINIL
     Indication: Pulmonary arterial hypertension
     Dosage: 0.0794 ?G/KG (SELF FILL CASSETTE WITH 2.7 ML; RATE OF 30 MCL ?PER HOUR), CONTINUOUS VIA SUBCUTANE...
     Route: 058
     Dates: start: 20250128
  6. OMEPRAZOLE [Concomitant]
     Active Substance: OMEPRAZOLE
  7. AZOPT [Concomitant]
     Active Substance: BRINZOLAMIDE
  8. SODIUM CHLORIDE [Concomitant]
     Active Substance: SODIUM CHLORIDE
  9. NEURONTIN [Concomitant]
     Active Substance: GABAPENTIN
  10. BUMETANIDE [Concomitant]
     Active Substance: BUMETANIDE
  11. MAGNESIUM OXIDE [Concomitant]
     Active Substance: MAGNESIUM OXIDE
  12. LATANOPROST [Concomitant]
     Active Substance: LATANOPROST
  13. KETAMINE HYDROCHLORIDE [Concomitant]
     Active Substance: KETAMINE HYDROCHLORIDE
  14. LECITHIN [Concomitant]
     Active Substance: LECITHIN
  15. Norco (hydrocodone bitartrate, paracetamol) [Concomitant]
  16. SILDENAFIL CITRATE [Concomitant]
     Active Substance: SILDENAFIL CITRATE
  17. ALLOPURINOL [Concomitant]
     Active Substance: ALLOPURINOL
  18. METHADONE HYDROCHLORIDE [Concomitant]
     Active Substance: METHADONE HYDROCHLORIDE
  19. LEVOTHYROXINE SODIUM [Concomitant]
     Active Substance: LEVOTHYROXINE SODIUM
  20. CLONIDINE [Concomitant]
     Active Substance: CLONIDINE
  21. KETOPROFEN [Concomitant]
     Active Substance: KETOPROFEN
  22. SPIRONOLACTONE [Concomitant]
     Active Substance: SPIRONOLACTONE
  23. OXYGEN [Concomitant]
     Active Substance: OXYGEN
  24. LIDOCAINE HYDROCHLORIDE [Concomitant]
     Active Substance: LIDOCAINE HYDROCHLORIDE
  25. calcitriol, [Concomitant]
  26. FARXIGA [Concomitant]
     Active Substance: DAPAGLIFLOZIN PROPANEDIOL
  27. AMITRIPTYLINE [Concomitant]
     Active Substance: AMITRIPTYLINE
  28. POLOXAMER [Concomitant]
     Active Substance: POLOXAMER
  29. POTASSIUM CHLORIDE [Concomitant]
     Active Substance: POTASSIUM CHLORIDE
  30. LOPERAMIDE [Concomitant]
     Active Substance: LOPERAMIDE

REACTIONS (4)
  - Neuropathy peripheral [Unknown]
  - Injection site pain [Unknown]
  - Fatigue [Unknown]
  - Arthralgia [Unknown]

NARRATIVE: CASE EVENT DATE: 20250101
